FAERS Safety Report 4735142-4 (Version None)
Quarter: 2005Q3

REPORT INFORMATION
  Report Type: 
  Country: None (occurrence: None)
  Receive Date: 20050803
  Receipt Date: 20050714
  Transmission Date: 20060218
  Serious: Yes (Hospitalization, Disabling, Other)
  Sender: FDA-Public Use
  Company Number: US_011177913

PATIENT
  Age: 40 Year
  Sex: Male

DRUGS (17)
  1. HUMALOG [Suspect]
     Indication: DIABETES MELLITUS
  2. HUMULIN U [Suspect]
     Indication: DIABETES MELLITUS
     Dosage: 24 U DAY
  3. HUMULIN R [Suspect]
     Indication: DIABETES MELLITUS
     Dosage: 5 U/2 DAY
  4. ILETIN-PORK NPH INSULIN (INSULIN, ANIMAL) [Suspect]
     Indication: DIABETES MELLITUS
  5. INSULIN [Suspect]
  6. FUROSEMIDE [Concomitant]
  7. ZAROXOLYN [Concomitant]
  8. LIPITOR [Concomitant]
  9. ULTRAM [Concomitant]
  10. XENICAL [Concomitant]
  11. POTASSIUM CHLORIDE [Concomitant]
  12. MULTI-VITAMIN [Concomitant]
  13. EYE DROP [Concomitant]
  14. LANTUS [Concomitant]
  15. EAR DROP [Concomitant]
  16. AZITHROMYCIN [Concomitant]
  17. NOVOLOG [Concomitant]

REACTIONS (15)
  - ABDOMINAL PAIN UPPER [None]
  - AMNESIA [None]
  - BLOOD GLUCOSE DECREASED [None]
  - BLOOD GLUCOSE INCREASED [None]
  - DIABETES MELLITUS INADEQUATE CONTROL [None]
  - FEELING COLD [None]
  - FROSTBITE [None]
  - HYPERHIDROSIS [None]
  - INSULIN RESISTANCE [None]
  - LEG AMPUTATION [None]
  - OSTEOMYELITIS [None]
  - PAIN IN EXTREMITY [None]
  - SOMNOLENCE [None]
  - TREMOR [None]
  - VOMITING [None]
